FAERS Safety Report 19034981 (Version 5)
Quarter: 2021Q3

REPORT INFORMATION
  Report Type: Report from Study
  Country: IT (occurrence: IT)
  Receive Date: 20210320
  Receipt Date: 20210831
  Transmission Date: 20211014
  Serious: Yes (Other)
  Sender: FDA-Public Use
  Company Number: IT-TAKEDA-IT201920132

PATIENT
  Age: 72 Year
  Sex: Female

DRUGS (36)
  1. TEDUGLUTIDE [Suspect]
     Active Substance: TEDUGLUTIDE
     Dosage: UNK, 1X/DAY:QD
     Route: 058
  2. TEDUGLUTIDE [Suspect]
     Active Substance: TEDUGLUTIDE
     Dosage: UNK, 1X/DAY:QD
     Route: 058
  3. SIMETHICONE (DIMETHICONE) [Concomitant]
     Active Substance: DIMETHICONE
     Indication: ABDOMINAL DISTENSION
     Dosage: 999 UNK
     Route: 065
     Dates: start: 2021, end: 20210510
  4. TEDUGLUTIDE [Suspect]
     Active Substance: TEDUGLUTIDE
     Indication: SHORT-BOWEL SYNDROME
     Dosage: 3.2 MILLIGRAM, 1X/DAY:QD
     Route: 058
     Dates: start: 20190401, end: 20201203
  5. AMOXICILLIN. [Concomitant]
     Active Substance: AMOXICILLIN
     Indication: DENTAL CARE
     Dosage: 1 GRAM
     Route: 048
     Dates: start: 20190627
  6. TEDUGLUTIDE [Suspect]
     Active Substance: TEDUGLUTIDE
     Indication: SHORT-BOWEL SYNDROME
     Dosage: 3.2 MILLIGRAM, 1X/DAY:QD
     Route: 058
     Dates: start: 20190401, end: 20201203
  7. TEDUGLUTIDE [Suspect]
     Active Substance: TEDUGLUTIDE
     Dosage: UNK, 1X/DAY:QD
     Route: 058
  8. TEDUGLUTIDE [Suspect]
     Active Substance: TEDUGLUTIDE
     Dosage: 3 MILLIGRAM, QD
     Route: 065
     Dates: start: 20201205, end: 20210207
  9. TEDUGLUTIDE [Suspect]
     Active Substance: TEDUGLUTIDE
     Dosage: 3 MICROGRAM
     Route: 065
     Dates: start: 20210224
  10. LOPERAMIDE [Concomitant]
     Active Substance: LOPERAMIDE
     Indication: NUTRITIONAL SUPPLEMENTATION
     Dosage: 20 MILLIGRAM, BID
     Route: 048
     Dates: start: 201909, end: 20190909
  11. TEDUGLUTIDE [Suspect]
     Active Substance: TEDUGLUTIDE
     Indication: SHORT-BOWEL SYNDROME
     Dosage: 3.2 MILLIGRAM, 1X/DAY:QD
     Route: 058
     Dates: start: 20190401, end: 20201203
  12. TEDUGLUTIDE [Suspect]
     Active Substance: TEDUGLUTIDE
     Dosage: 3 MILLIGRAM (0.490 MG/KG), QD
     Route: 065
     Dates: start: 20210224
  13. TEDUGLUTIDE [Suspect]
     Active Substance: TEDUGLUTIDE
     Dosage: 3 MILLIGRAM, QD
     Route: 065
     Dates: start: 20201205, end: 20210207
  14. TEDUGLUTIDE [Suspect]
     Active Substance: TEDUGLUTIDE
     Dosage: 2.8 MICROGRAM
     Route: 065
     Dates: start: 20210208, end: 20210223
  15. TEDUGLUTIDE [Suspect]
     Active Substance: TEDUGLUTIDE
     Dosage: 3 MICROGRAM
     Route: 065
     Dates: start: 20210224
  16. ASTRAZENECA COVID?19 VACCINE [Concomitant]
     Active Substance: AZD-1222
     Indication: COVID-19
     Dosage: 1 INTERNATIONAL UNIT, 2 DOSES
     Route: 030
     Dates: start: 20210409, end: 20210609
  17. TEDUGLUTIDE [Suspect]
     Active Substance: TEDUGLUTIDE
     Indication: SHORT-BOWEL SYNDROME
     Dosage: 3.2 MILLIGRAM, 1X/DAY:QD
     Route: 058
     Dates: start: 20190401, end: 20201203
  18. TEDUGLUTIDE [Suspect]
     Active Substance: TEDUGLUTIDE
     Dosage: UNK, 1X/DAY:QD
     Route: 058
  19. TEDUGLUTIDE [Suspect]
     Active Substance: TEDUGLUTIDE
     Dosage: UNK, 1X/DAY:QD
     Route: 058
  20. TEDUGLUTIDE [Suspect]
     Active Substance: TEDUGLUTIDE
     Dosage: 3 MILLIGRAM, QD
     Route: 065
     Dates: start: 20201205, end: 20210207
  21. MICARDIS [Concomitant]
     Active Substance: TELMISARTAN
     Indication: PRODUCT USED FOR UNKNOWN INDICATION
     Route: 065
  22. TEDUGLUTIDE [Suspect]
     Active Substance: TEDUGLUTIDE
     Dosage: 2.8 MICROGRAM
     Route: 065
     Dates: start: 20210208, end: 20210223
  23. TEDUGLUTIDE [Suspect]
     Active Substance: TEDUGLUTIDE
     Dosage: 3 MICROGRAM
     Route: 065
     Dates: start: 20210224
  24. TEDUGLUTIDE [Suspect]
     Active Substance: TEDUGLUTIDE
     Dosage: 3 MICROGRAM
     Route: 065
     Dates: start: 20210224
  25. TEDUGLUTIDE [Suspect]
     Active Substance: TEDUGLUTIDE
     Dosage: 3 MILLIGRAM (0.490 MG/KG), QD
     Route: 065
     Dates: start: 20210224
  26. CITRAK [Concomitant]
     Indication: NUTRITIONAL SUPPLEMENTATION
     Dosage: 1 INTERNATIONAL UNIT, QD
     Route: 048
     Dates: start: 2020
  27. TEDUGLUTIDE [Suspect]
     Active Substance: TEDUGLUTIDE
     Dosage: UNK, 1X/DAY:QD
     Route: 058
  28. TEDUGLUTIDE [Suspect]
     Active Substance: TEDUGLUTIDE
     Dosage: UNK, 1X/DAY:QD
     Route: 058
  29. TEDUGLUTIDE [Suspect]
     Active Substance: TEDUGLUTIDE
     Dosage: UNK, 1X/DAY:QD
     Route: 058
  30. TEDUGLUTIDE [Suspect]
     Active Substance: TEDUGLUTIDE
     Dosage: 3 MILLIGRAM, QD
     Route: 065
     Dates: start: 20201205, end: 20210207
  31. TEDUGLUTIDE [Suspect]
     Active Substance: TEDUGLUTIDE
     Dosage: 2.8 MICROGRAM
     Route: 065
     Dates: start: 20210208, end: 20210223
  32. TEDUGLUTIDE [Suspect]
     Active Substance: TEDUGLUTIDE
     Dosage: 2.8 MICROGRAM
     Route: 065
     Dates: start: 20210208, end: 20210223
  33. TEDUGLUTIDE [Suspect]
     Active Substance: TEDUGLUTIDE
     Dosage: 3 MILLIGRAM (0.490 MG/KG), QD
     Route: 065
     Dates: start: 20210224
  34. TEDUGLUTIDE [Suspect]
     Active Substance: TEDUGLUTIDE
     Dosage: 3 MILLIGRAM (0.490 MG/KG), QD
     Route: 065
     Dates: start: 20210224
  35. LOBIVON [Concomitant]
     Active Substance: NEBIVOLOL HYDROCHLORIDE
     Indication: PRODUCT USED FOR UNKNOWN INDICATION
     Route: 065
  36. ARIXTRA [Concomitant]
     Active Substance: FONDAPARINUX SODIUM
     Indication: PRODUCT USED FOR UNKNOWN INDICATION
     Route: 065

REACTIONS (10)
  - Device leakage [Recovered/Resolved]
  - Intestinal obstruction [Recovered/Resolved]
  - Catheter site inflammation [Recovering/Resolving]
  - Stenosis [Unknown]
  - Device related infection [Recovered/Resolved]
  - Blood bicarbonate increased [Not Recovered/Not Resolved]
  - Hypomagnesaemia [Recovered/Resolved]
  - Injection site oedema [Recovered/Resolved]
  - Abdominal pain [Recovered/Resolved]
  - Unevaluable event [Recovered/Resolved]

NARRATIVE: CASE EVENT DATE: 20190516
